FAERS Safety Report 5823610-3 (Version None)
Quarter: 2008Q3

REPORT INFORMATION
  Report Type: 
  Country: None (occurrence: None)
  Receive Date: 20080725
  Receipt Date: 20080702
  Transmission Date: 20090109
  Serious: No
  Sender: FDA-Public Use
  Company Number: IN-BOEHRINGER INGELHEIM GMBH, GERMANY-2008-BP-10917SG

PATIENT
  Age: 57 Year
  Sex: Male

DRUGS (1)
  1. AGGRENOX [Suspect]
     Indication: ISCHAEMIC STROKE
     Route: 048
     Dates: start: 20080524, end: 20080613

REACTIONS (2)
  - DIZZINESS [None]
  - HEADACHE [None]
